FAERS Safety Report 6583869-4 (Version None)
Quarter: 2010Q1

REPORT INFORMATION
  Report Type: 
  Country: None (occurrence: None)
  Receive Date: 20100213
  Receipt Date: 20100213
  Transmission Date: 20100710
  Serious: Yes (Other)
  Sender: FDA-Public Use
  Company Number: None

PATIENT
  Sex: Female
  Weight: 76.6579 kg

DRUGS (5)
  1. NEXIUM [Suspect]
     Indication: GASTROOESOPHAGEAL REFLUX DISEASE
     Dosage: 1 DAILY
     Dates: start: 20100119, end: 20100202
  2. PREMARIN [Concomitant]
  3. TOPROL-XL [Concomitant]
  4. ALPHAGAN [Concomitant]
  5. COSOPT [Concomitant]

REACTIONS (12)
  - ABDOMINAL PAIN LOWER [None]
  - BREAST PAIN [None]
  - DIZZINESS [None]
  - ERUCTATION [None]
  - FREQUENT BOWEL MOVEMENTS [None]
  - GLOSSODYNIA [None]
  - HEART RATE INCREASED [None]
  - HYPOAESTHESIA [None]
  - OROPHARYNGEAL PAIN [None]
  - PARAESTHESIA [None]
  - THROAT IRRITATION [None]
  - VISION BLURRED [None]
